FAERS Safety Report 25536912 (Version 1)
Quarter: 2025Q3

REPORT INFORMATION
  Report Type: Spontaneous
  Country: EU (occurrence: EU)
  Receive Date: 20250710
  Receipt Date: 20250710
  Transmission Date: 20251021
  Serious: No
  Sender: ASTELLAS
  Company Number: EU-ASTELLAS-2025-AER-036355

PATIENT
  Age: 59 Year
  Sex: Female

DRUGS (1)
  1. VEOZAH [Suspect]
     Active Substance: FEZOLINETANT
     Indication: Menopause
     Dosage: EVENING
     Route: 050
     Dates: start: 20250401

REACTIONS (1)
  - Gamma-glutamyltransferase increased [Not Recovered/Not Resolved]
